FAERS Safety Report 6983980-X (Version None)
Quarter: 2010Q3

REPORT INFORMATION
  Report Type: 
  Country: None (occurrence: None)
  Receive Date: 20100915
  Receipt Date: 20090429
  Transmission Date: 20110219
  Serious: No
  Sender: FDA-Public Use
  Company Number: US-WYE-H09184509

PATIENT
  Age: 44 Year
  Sex: Female
  Weight: 63.56 kg

DRUGS (2)
  1. ADVIL PM [Suspect]
     Indication: TOOTHACHE
     Dosage: UNKNOWN
     Route: 048
  2. ADVIL PM [Suspect]
     Dosage: 2 CAPLETS X 1
     Route: 048
     Dates: start: 20090426, end: 20090426

REACTIONS (2)
  - ABDOMINAL PAIN UPPER [None]
  - INAPPROPRIATE SCHEDULE OF DRUG ADMINISTRATION [None]
